FAERS Safety Report 8584452-1 (Version None)
Quarter: 2012Q3

REPORT INFORMATION
  Report Type: 
  Country: None (occurrence: None)
  Receive Date: 20120730
  Receipt Date: 20120604
  Transmission Date: 20120928
  Serious: Yes (Other)
  Sender: FDA-Public Use
  Company Number: 2012SA040150

PATIENT
  Age: 77 Year
  Sex: Female
  Weight: 74 kg

DRUGS (1)
  1. ASPERCREME / UNKNOWN / UNKNOWN [Suspect]
     Indication: ARTHRITIS

REACTIONS (2)
  - APPLICATION SITE PAIN [None]
  - APPLICATION SITE VESICLES [None]
